FAERS Safety Report 15082191 (Version 1)
Quarter: 2018Q2

REPORT INFORMATION
  Report Type: Spontaneous
  Country: US (occurrence: US)
  Receive Date: 20180607
  Receipt Date: 20180607
  Transmission Date: 20180711
  Serious: Yes (Life-Threatening, Disabling)
  Sender: FDA-Public Use
  Company Number: None

PATIENT
  Age: 66 Year
  Sex: Male
  Weight: 78.3 kg

DRUGS (4)
  1. KYPROLIS [Suspect]
     Active Substance: CARFILZOMIB
     Indication: PLASMA CELL MYELOMA
     Dates: start: 20150801, end: 20180226
  2. VITAMINS [Concomitant]
     Active Substance: VITAMINS
  3. PAIN MEDICATIONS [Concomitant]
     Active Substance: UNSPECIFIED INGREDIENT
  4. ANTIBIOTICS [Concomitant]
     Active Substance: UNSPECIFIED INGREDIENT

REACTIONS (4)
  - Dyspnoea [None]
  - Right atrial enlargement [None]
  - Exercise tolerance decreased [None]
  - Product label issue [None]

NARRATIVE: CASE EVENT DATE: 20151021
